FAERS Safety Report 22342383 (Version 1)
Quarter: 2023Q2

REPORT INFORMATION
  Report Type: Spontaneous
  Country: IT (occurrence: IT)
  Receive Date: 20230519
  Receipt Date: 20230519
  Transmission Date: 20230721
  Serious: Yes (Other)
  Sender: FDA-Public Use
  Company Number: IT-JNJFOC-20230542996

PATIENT
  Age: 38 Year
  Sex: Female

DRUGS (3)
  1. HALDOL [Suspect]
     Active Substance: HALOPERIDOL
     Indication: Product used for unknown indication
     Dosage: 30ML BOTTLE SOLUTION
     Route: 048
  2. LAMOTRIGINE [Suspect]
     Active Substance: LAMOTRIGINE
     Indication: Product used for unknown indication
     Dosage: LAMOTRIGINE 56 TABLETS 50 MG
     Route: 048
  3. LITHIUM CARBONATE [Suspect]
     Active Substance: LITHIUM CARBONATE
     Indication: Product used for unknown indication
     Dosage: CARBOLITHIUM 50 TABLETS 300 MG
     Route: 048

REACTIONS (3)
  - Intentional self-injury [Unknown]
  - Intentional product misuse [Unknown]
  - Overdose [Unknown]
